FAERS Safety Report 10304806 (Version 1)
Quarter: 2014Q3

REPORT INFORMATION
  Report Type: Spontaneous
  Country: US (occurrence: None)
  Receive Date: 20140710
  Receipt Date: 20140710
  Transmission Date: 20150326
  Serious: Yes (Hospitalization)
  Sender: FDA-Public Use
  Company Number: None

PATIENT
  Age: 53 Year
  Sex: Female
  Weight: 68.04 kg

DRUGS (1)
  1. BONIVA [Suspect]
     Active Substance: IBANDRONATE SODIUM
     Dosage: MONTHLY, TAKEN BY MOUTH
     Route: 048

REACTIONS (7)
  - Headache [None]
  - Neck pain [None]
  - Pain in extremity [None]
  - Back pain [None]
  - Chest pain [None]
  - Arthralgia [None]
  - Dyspnoea [None]

NARRATIVE: CASE EVENT DATE: 20140709
